FAERS Safety Report 19711685 (Version 3)
Quarter: 2022Q2

REPORT INFORMATION
  Report Type: Spontaneous
  Country: CA (occurrence: CA)
  Receive Date: 20210817
  Receipt Date: 20220607
  Transmission Date: 20220720
  Serious: Yes (Other)
  Sender: FDA-Public Use
  Company Number: CA-MLMSERVICE-20210728-3019356-1

PATIENT
  Age: 22 Year
  Sex: Female

DRUGS (7)
  1. ERYTHROMYCIN [Interacting]
     Active Substance: ERYTHROMYCIN
     Indication: Premature labour
     Route: 065
  2. TACROLIMUS [Interacting]
     Active Substance: TACROLIMUS
     Indication: Immunosuppression
     Route: 048
  3. TACROLIMUS [Interacting]
     Active Substance: TACROLIMUS
     Dosage: INCREASED DOSE
     Route: 048
  4. TACROLIMUS [Interacting]
     Active Substance: TACROLIMUS
     Dosage: DOSE REDUCED
     Route: 048
  5. AZATHIOPRINE [Suspect]
     Active Substance: AZATHIOPRINE
     Indication: Product used for unknown indication
     Route: 065
  6. PREDNISONE [Suspect]
     Active Substance: PREDNISONE
     Indication: Immunosuppression
     Route: 065
  7. PREDNISONE [Suspect]
     Active Substance: PREDNISONE
     Dosage: INCREASED DOSE
     Route: 065

REACTIONS (3)
  - Drug interaction [Unknown]
  - Thrombotic microangiopathy [Recovering/Resolving]
  - Maternal exposure during pregnancy [Unknown]
